FAERS Safety Report 15336125 (Version 3)
Quarter: 2018Q3

REPORT INFORMATION
  Report Type: Spontaneous
  Country: SK (occurrence: SK)
  Receive Date: 20180830
  Receipt Date: 20180928
  Transmission Date: 20181010
  Serious: Yes (Hospitalization, Other)
  Sender: FDA-Public Use
  Company Number: SK-ALLERGAN-1842008US

PATIENT
  Age: 30 Year
  Sex: Male

DRUGS (7)
  1. ESCITALOPRAM OXALATE ? BP [Suspect]
     Active Substance: ESCITALOPRAM OXALATE
     Dosage: 10 MG, PRO DIE
     Route: 065
  2. OLANZAPINE. [Suspect]
     Active Substance: OLANZAPINE
     Dosage: 15 MG, PRO DIE
     Route: 048
  3. OLANZAPINE. [Suspect]
     Active Substance: OLANZAPINE
     Dosage: 10 MG, PRO DIE
     Route: 048
     Dates: end: 2011
  4. QUETIAPINE. [Concomitant]
     Active Substance: QUETIAPINE
     Indication: BIPOLAR DISORDER
     Dosage: 500 MG, PRO DIE (EXTENDED?RELEASE FORM)
     Route: 065
  5. VALPROATE [Concomitant]
     Active Substance: VALPROIC ACID
     Indication: BIPOLAR DISORDER
     Dosage: UNK
     Route: 048
  6. OLANZAPINE. [Suspect]
     Active Substance: OLANZAPINE
     Indication: BIPOLAR DISORDER
     Dosage: UNK
     Route: 048
     Dates: start: 2012
  7. ESCITALOPRAM OXALATE ? BP [Suspect]
     Active Substance: ESCITALOPRAM OXALATE
     Indication: BIPOLAR DISORDER
     Dosage: 5 MG, PRO DIE
     Route: 065

REACTIONS (12)
  - Sleep disorder [Recovering/Resolving]
  - Depression [Unknown]
  - Abulia [Unknown]
  - Mania [Unknown]
  - Anhedonia [Unknown]
  - Disturbance in social behaviour [Unknown]
  - Product use in unapproved indication [Unknown]
  - Hypomania [Unknown]
  - Asthenia [Unknown]
  - Weight increased [Unknown]
  - Mental impairment [Unknown]
  - Delusion [Unknown]
